FAERS Safety Report 22615035 (Version 1)
Quarter: 2023Q2

REPORT INFORMATION
  Report Type: Report from Study
  Country: US (occurrence: US)
  Receive Date: 20230619
  Receipt Date: 20230619
  Transmission Date: 20230722
  Serious: Yes (Other)
  Sender: FDA-Public Use
  Company Number: US-002147023-NVSC2023US136299

PATIENT
  Sex: Female

DRUGS (1)
  1. KISQALI [Suspect]
     Active Substance: RIBOCICLIB
     Indication: Product used for unknown indication
     Dosage: UNK (START DATE: OCTOBER)
     Route: 065

REACTIONS (7)
  - Streptobacillus infection [Unknown]
  - Candida infection [Unknown]
  - Fungal infection [Unknown]
  - Fatigue [Unknown]
  - Nausea [Recovered/Resolved]
  - Alopecia [Unknown]
  - Rash [Unknown]
